FAERS Safety Report 5316688-7 (Version None)
Quarter: 2007Q2

REPORT INFORMATION
  Report Type: 
  Country: None (occurrence: None)
  Receive Date: 20070504
  Receipt Date: 20070427
  Transmission Date: 20071010
  Serious: Yes (Hospitalization)
  Sender: FDA-Public Use
  Company Number: DE-GENENTECH-240760

PATIENT
  Sex: Female
  Weight: 70 kg

DRUGS (4)
  1. MABTHERA [Suspect]
     Indication: VASCULITIS
     Dosage: 645 MG, UNK
     Route: 042
     Dates: start: 20070404
  2. PARACETAMOL [Concomitant]
     Indication: DRUG USE FOR UNKNOWN INDICATION
     Dosage: 645 MG, 1/WEEK
     Route: 042
     Dates: start: 20070404
  3. PREDNISONE [Concomitant]
     Indication: DRUG USE FOR UNKNOWN INDICATION
     Dosage: 100 MG, UNK
     Route: 042
     Dates: start: 20070404
  4. CLEMASTINE FUMARATE [Concomitant]
     Indication: DRUG USE FOR UNKNOWN INDICATION
     Dosage: 268 MG, 1/WEEK
     Route: 042
     Dates: start: 20070404

REACTIONS (1)
  - RENAL FAILURE ACUTE [None]
